FAERS Safety Report 9320181 (Version 4)
Quarter: 2014Q2

REPORT INFORMATION
  Report Type: Spontaneous
  Country: US (occurrence: US)
  Receive Date: 20130530
  Receipt Date: 20140429
  Transmission Date: 20141212
  Serious: Yes (Other)
  Sender: FDA-Public Use
  Company Number: US-PFIZER INC-2013164216

PATIENT
  Age: 49 Year
  Sex: Male
  Weight: 79.37 kg

DRUGS (15)
  1. LYRICA [Suspect]
     Indication: NEURALGIA
     Dosage: 100 MG, 2X/DAY
     Route: 048
     Dates: start: 20130326, end: 20130820
  2. LYRICA [Suspect]
     Indication: NEUROPATHY PERIPHERAL
     Dosage: 100 MG, 3X/DAY
     Route: 048
     Dates: start: 20130820, end: 2013
  3. LYRICA [Suspect]
     Indication: NEUROPATHY PERIPHERAL
  4. NEURONTIN [Suspect]
     Dosage: UNK
  5. FLONASE [Concomitant]
     Dosage: 50 UG, 2X/DAY
     Route: 045
     Dates: start: 20130326
  6. NORCO [Concomitant]
     Indication: PAIN
     Dosage: 1 TABLET EVERY 6 HOURS AS NEEDED
     Route: 048
     Dates: start: 20130820
  7. PRINIVIL [Concomitant]
     Dosage: 10 MG, DAILY
     Dates: start: 20130326
  8. METHYLPREDNISOLONE [Concomitant]
     Dosage: 4 MG, DAILY
     Dates: start: 20130326
  9. PROVIGIL [Concomitant]
     Dosage: 100 MG, DAILY
     Dates: start: 20130326
  10. RESTORIL [Concomitant]
     Indication: INSOMNIA
     Dosage: 15 MG, DAILY
     Dates: start: 20030820
  11. NORVASC [Concomitant]
     Dosage: 10 MG, 1X/DAY
     Dates: start: 20130326
  12. KENALOG [Concomitant]
  13. SOMA [Concomitant]
     Dosage: 350 MG, 4X/DAY
     Dates: start: 20130326
  14. DESYREL [Concomitant]
     Dosage: 50 MG, 1X/DAY
     Dates: start: 20130326, end: 20130820
  15. NEXIUM [Concomitant]
     Dosage: 40 MG, DAILY
     Dates: start: 20130326, end: 20130820

REACTIONS (8)
  - Cauda equina syndrome [Unknown]
  - Spinal disorder [Unknown]
  - Drug ineffective [Unknown]
  - Hypoaesthesia [Unknown]
  - Body height decreased [Unknown]
  - Neuralgia [Unknown]
  - Neck pain [Unknown]
  - Pain [Unknown]
